FAERS Safety Report 4982603-9 (Version None)
Quarter: 2006Q2

REPORT INFORMATION
  Report Type: 
  Country: None (occurrence: None)
  Receive Date: 20060420
  Receipt Date: 20060405
  Transmission Date: 20061013
  Serious: Yes (Other)
  Sender: FDA-Public Use
  Company Number: 2006BH007554

PATIENT
  Age: 60 Year
  Sex: Female

DRUGS (1)
  1. BALANCED SALT SOLUTION [Suspect]
     Indication: CATARACT OPERATION
     Dates: start: 20060320, end: 20060320

REACTIONS (5)
  - ENDOPHTHALMITIS [None]
  - EYE PAIN [None]
  - PHOTOPHOBIA [None]
  - POST PROCEDURAL COMPLICATION [None]
  - VISUAL ACUITY REDUCED [None]
